FAERS Safety Report 16865727 (Version 1)
Quarter: 2019Q3

REPORT INFORMATION
  Report Type: Spontaneous
  Country: US (occurrence: US)
  Receive Date: 20190805
  Receipt Date: 20190805
  Transmission Date: 20191005
  Serious: Yes (Hospitalization)
  Sender: FDA-Public Use
  Company Number: None

PATIENT
  Age: 85 Year
  Sex: Male
  Weight: 60.33 kg

DRUGS (2)
  1. LORAZEPAM. [Suspect]
     Active Substance: LORAZEPAM
     Indication: NAUSEA
     Route: 042
     Dates: start: 20190604, end: 20190604
  2. LORAZEPAM. [Suspect]
     Active Substance: LORAZEPAM
     Indication: VOMITING
     Route: 042
     Dates: start: 20190604, end: 20190604

REACTIONS (6)
  - Sepsis [None]
  - Respiratory failure [None]
  - Oxygen saturation decreased [None]
  - Sedation [None]
  - Osteomyelitis [None]
  - Drug clearance decreased [None]

NARRATIVE: CASE EVENT DATE: 20190604
